FAERS Safety Report 12836911 (Version 1)
Quarter: 2016Q4

REPORT INFORMATION
  Report Type: Report from Study
  Country: US (occurrence: US)
  Receive Date: 20161011
  Receipt Date: 20161011
  Transmission Date: 20170207
  Serious: Yes (Hospitalization)
  Sender: FDA-Public Use
  Company Number: US-BAXALTA-2016BLT007318

PATIENT
  Age: 62 Year
  Sex: Female

DRUGS (1)
  1. ARALAST NP [Suspect]
     Active Substance: .ALPHA.1-PROTEINASE INHIBITOR HUMAN
     Indication: ALPHA-1 ANTI-TRYPSIN DEFICIENCY
     Dosage: UNK,  1X A WEEK
     Route: 042

REACTIONS (2)
  - Chest pain [Unknown]
  - Inflammation [Unknown]

NARRATIVE: CASE EVENT DATE: 20161005
